FAERS Safety Report 19318101 (Version 1)
Quarter: 2021Q2

REPORT INFORMATION
  Report Type: Spontaneous
  Country: US (occurrence: US)
  Receive Date: 20210528
  Receipt Date: 20210528
  Transmission Date: 20210717
  Serious: Yes (Other)
  Sender: FDA-Public Use
  Company Number: US-PURDUE-USA-2020-0222542

PATIENT
  Sex: Male

DRUGS (9)
  1. OXYCODONE/ ACETAMINOPHEN TABLETS [Suspect]
     Active Substance: ACETAMINOPHEN\OXYCODONE HYDROCHLORIDE
     Indication: ACCIDENT AT WORK
     Dosage: UNKNOWN
     Route: 048
     Dates: start: 1998
  2. MORPHINE SULFATE EXTENDED?RELEASE TABLETS (RHODES 74?769, 74?862) [Suspect]
     Active Substance: MORPHINE SULFATE
     Indication: ACCIDENT AT WORK
     Dosage: UNKNOWN
     Route: 048
     Dates: start: 1998
  3. TRAMADOL CR TABLETS (RHODES 21?745) [Suspect]
     Active Substance: TRAMADOL
     Indication: ACCIDENT AT WORK
     Dosage: UNKNOWN
     Route: 048
     Dates: start: 1998
  4. HYDROCODONE BITARTRATE AND ACETAMINOPHEN [Suspect]
     Active Substance: ACETAMINOPHEN\HYDROCODONE BITARTRATE
     Indication: ACCIDENT AT WORK
     Dosage: UNKNOWN
     Route: 048
     Dates: start: 1998
  5. OXYCONTIN [Suspect]
     Active Substance: OXYCODONE HYDROCHLORIDE
     Indication: ACCIDENT AT WORK
     Dosage: UNKNOWN
     Route: 048
     Dates: start: 1998
  6. DILAUDID [Suspect]
     Active Substance: HYDROMORPHONE HYDROCHLORIDE
     Indication: ACCIDENT AT WORK
     Dosage: UNKNOWN
     Route: 048
     Dates: start: 1998
  7. OXYCODONE HCL CR TABLETS (SIMILAR TO NDA 22?272) [Suspect]
     Active Substance: OXYCODONE HYDROCHLORIDE
     Indication: ACCIDENT AT WORK
     Dosage: UNKNOWN
     Route: 048
     Dates: start: 1998
  8. MS CONTIN [Suspect]
     Active Substance: MORPHINE SULFATE
     Indication: ACCIDENT AT WORK
     Dosage: UNKNOWN
     Route: 048
     Dates: start: 1998
  9. OXYCODONE HCL TABLETS (RHODES 91?490) [Suspect]
     Active Substance: OXYCODONE HYDROCHLORIDE
     Indication: ACCIDENT AT WORK
     Dosage: UNKNOWN
     Route: 048
     Dates: start: 1998

REACTIONS (3)
  - Depression [Unknown]
  - Drug dependence [Recovered/Resolved]
  - Self esteem decreased [Unknown]
